FAERS Safety Report 6758525-X (Version None)
Quarter: 2010Q2

REPORT INFORMATION
  Report Type: 
  Country: None (occurrence: None)
  Receive Date: 20100607
  Receipt Date: 20100528
  Transmission Date: 20101027
  Serious: Yes (Hospitalization)
  Sender: FDA-Public Use
  Company Number: B0657032A

PATIENT
  Sex: Female

DRUGS (6)
  1. CLAVAMOX [Suspect]
     Indication: OTITIS MEDIA
     Dosage: 1G PER DAY
     Route: 048
     Dates: start: 20100511, end: 20100518
  2. MUCODYNE [Concomitant]
     Indication: PRODUCTIVE COUGH
     Route: 048
     Dates: start: 20100511, end: 20100519
  3. MUCOSOLVAN [Concomitant]
     Indication: PRODUCTIVE COUGH
     Route: 048
     Dates: start: 20100511, end: 20100519
  4. BIOFERMIN [Concomitant]
     Route: 048
     Dates: start: 20100511, end: 20100519
  5. DECADRON [Concomitant]
  6. KETOTIFEN FUMARATE [Concomitant]

REACTIONS (7)
  - COUGH [None]
  - DRUG ERUPTION [None]
  - ERYTHEMA [None]
  - PNEUMONIA [None]
  - PYREXIA [None]
  - RASH [None]
  - RASH GENERALISED [None]
